FAERS Safety Report 8438421-2 (Version None)
Quarter: 2012Q2

REPORT INFORMATION
  Report Type: 
  Country: None (occurrence: None)
  Receive Date: 20120614
  Receipt Date: 20120605
  Transmission Date: 20120825
  Serious: Yes (Hospitalization, Other)
  Sender: FDA-Public Use
  Company Number: US-ELI_LILLY_AND_COMPANY-US201108001790

PATIENT
  Sex: Female
  Weight: 152 kg

DRUGS (10)
  1. IBUPROFEN [Concomitant]
     Indication: PRODUCT USED FOR UNKNOWN INDICATION
  2. VITAMIN D [Concomitant]
     Indication: PRODUCT USED FOR UNKNOWN INDICATION
  3. LISINOPRIL [Concomitant]
     Indication: PRODUCT USED FOR UNKNOWN INDICATION
  4. VICODIN [Concomitant]
     Indication: PRODUCT USED FOR UNKNOWN INDICATION
  5. FORTEO [Suspect]
     Indication: OSTEOPOROSIS
     Dosage: 20 UG, QD
     Route: 058
  6. NSAID'S [Concomitant]
  7. FORTEO [Suspect]
     Dosage: 20 UG, QD
     Route: 058
  8. CALCIUM [Concomitant]
     Indication: PRODUCT USED FOR UNKNOWN INDICATION
  9. VITAMIN TAB [Concomitant]
     Indication: PRODUCT USED FOR UNKNOWN INDICATION
  10. FORTEO [Suspect]
     Dosage: 20 UG, QD
     Route: 058
     Dates: start: 20110101

REACTIONS (12)
  - BACK PAIN [None]
  - COLITIS [None]
  - SKIN DISCOLOURATION [None]
  - JOINT SWELLING [None]
  - RENAL IMPAIRMENT [None]
  - KNEE ARTHROPLASTY [None]
  - PAIN IN EXTREMITY [None]
  - ARTHRALGIA [None]
  - ARTHRITIS [None]
  - SYNCOPE [None]
  - SOMNOLENCE [None]
  - MACULAR DEGENERATION [None]
